FAERS Safety Report 4546284-0 (Version None)
Quarter: 2005Q1

REPORT INFORMATION
  Report Type: 
  Country: None (occurrence: None)
  Receive Date: 20050106
  Receipt Date: 20041202
  Transmission Date: 20050727
  Serious: Yes (Disabling)
  Sender: FDA-Public Use
  Company Number: JP-GLAXOSMITHKLINE-B0359215A

PATIENT
  Age: 73 Year
  Sex: Female
  Weight: 45 kg

DRUGS (4)
  1. DERMOVATE [Suspect]
     Indication: CUTANEOUS LUPUS ERYTHEMATOSUS
     Route: 061
     Dates: start: 20041020
  2. VOLTAREN [Suspect]
     Dosage: 25MG PER DAY
     Route: 054
     Dates: start: 20041029
  3. MYALONE (JAPAN) [Concomitant]
     Indication: CUTANEOUS LUPUS ERYTHEMATOSUS
     Route: 061
     Dates: start: 20040401, end: 20041019
  4. DRENISON [Concomitant]
     Indication: CUTANEOUS LUPUS ERYTHEMATOSUS
     Dosage: 1UNIT PER DAY
     Route: 062
     Dates: start: 20041020, end: 20041026

REACTIONS (4)
  - DEPRESSED LEVEL OF CONSCIOUSNESS [None]
  - HYPERPYREXIA [None]
  - HYPOTENSION [None]
  - PYREXIA [None]
